FAERS Safety Report 21044490 (Version 1)
Quarter: 2022Q3

REPORT INFORMATION
  Report Type: Other
  Country: US (occurrence: US)
  Receive Date: 20220705
  Receipt Date: 20220705
  Transmission Date: 20221027
  Serious: Yes (Hospitalization)
  Sender: FDA-Public Use
  Company Number: US-HLS-202200672

PATIENT
  Age: 45 Year
  Sex: Male

DRUGS (21)
  1. CLOZAPINE [Suspect]
     Active Substance: CLOZAPINE
     Indication: Echolalia
     Route: 065
  2. CLOZAPINE [Suspect]
     Active Substance: CLOZAPINE
     Indication: Hallucination
     Route: 065
  3. CLOZAPINE [Suspect]
     Active Substance: CLOZAPINE
     Indication: Bradyphrenia
     Route: 065
  4. CLOZAPINE [Suspect]
     Active Substance: CLOZAPINE
     Indication: Echolalia
     Dosage: GRADUALLY DECREASED
     Route: 065
  5. CLOZAPINE [Suspect]
     Active Substance: CLOZAPINE
     Indication: Hallucination
     Dosage: GRADUALLY DECREASED
     Route: 065
  6. CLOZAPINE [Suspect]
     Active Substance: CLOZAPINE
     Indication: Bradyphrenia
     Dosage: GRADUALLY DECREASED
     Route: 065
  7. CLOZAPINE [Suspect]
     Active Substance: CLOZAPINE
     Indication: Echolalia
     Dosage: GRADUALLY REINTRODUCED, BUT TITRATED TO LOWER LEVELS THAN PREVIOUSLY ADMINISTERED
     Route: 065
  8. CLOZAPINE [Suspect]
     Active Substance: CLOZAPINE
     Indication: Hallucination
     Dosage: GRADUALLY REINTRODUCED, BUT TITRATED TO LOWER LEVELS THAN PREVIOUSLY ADMINISTERED
     Route: 065
  9. CLOZAPINE [Suspect]
     Active Substance: CLOZAPINE
     Indication: Bradyphrenia
     Dosage: GRADUALLY REINTRODUCED, BUT TITRATED TO LOWER LEVELS THAN PREVIOUSLY ADMINISTERED
     Route: 065
  10. CLONAZEPAM [Concomitant]
     Active Substance: CLONAZEPAM
     Indication: Agitation
     Route: 048
  11. CLONAZEPAM [Concomitant]
     Active Substance: CLONAZEPAM
     Indication: Agitation
     Route: 065
  12. LORAZEPAM [Concomitant]
     Active Substance: LORAZEPAM
     Indication: Agitation
     Dosage: 1-2 MG IM/PO
     Route: 065
  13. LORAZEPAM [Concomitant]
     Active Substance: LORAZEPAM
     Indication: Catatonia
     Dosage: 1-2 MG IM/PO
     Route: 065
  14. LORAZEPAM [Concomitant]
     Active Substance: LORAZEPAM
     Indication: Agitation
     Dosage: DOSES WERE GRADUALLY DECREASED
     Route: 065
  15. LORAZEPAM [Concomitant]
     Active Substance: LORAZEPAM
     Indication: Catatonia
     Dosage: DOSES WERE GRADUALLY DECREASED
     Route: 065
  16. LORAZEPAM [Concomitant]
     Active Substance: LORAZEPAM
     Indication: Agitation
     Dosage: REINTRODUCED TITRATED TO LOWER LEVELS THAN PREVIOUSLY ADMINISTERED
     Route: 065
  17. LORAZEPAM [Concomitant]
     Active Substance: LORAZEPAM
     Indication: Catatonia
     Dosage: REINTRODUCED TITRATED TO LOWER LEVELS THAN PREVIOUSLY ADMINISTERED
     Route: 065
  18. LORAZEPAM [Concomitant]
     Active Substance: LORAZEPAM
     Indication: Agitation
     Route: 048
  19. LORAZEPAM [Concomitant]
     Active Substance: LORAZEPAM
     Indication: Catatonia
     Route: 048
  20. LORAZEPAM [Concomitant]
     Active Substance: LORAZEPAM
     Indication: Agitation
     Route: 065
  21. LORAZEPAM [Concomitant]
     Active Substance: LORAZEPAM
     Indication: Catatonia
     Route: 065

REACTIONS (16)
  - Catatonia [Unknown]
  - Conversion disorder [Unknown]
  - Speech disorder [Unknown]
  - COVID-19 [Recovered/Resolved]
  - Disinhibition [Unknown]
  - Dyskinesia [Unknown]
  - Frontotemporal dementia [Unknown]
  - Amnesia [Unknown]
  - Cognitive disorder [Unknown]
  - Withdrawal syndrome [Unknown]
  - Psychomotor retardation [Unknown]
  - Restlessness [Unknown]
  - Cognitive disorder [Unknown]
  - Stereotypy [Unknown]
  - Condition aggravated [Unknown]
  - Eating disorder [Unknown]
